FAERS Safety Report 8255662-8 (Version None)
Quarter: 2012Q2

REPORT INFORMATION
  Report Type: 
  Country: None (occurrence: None)
  Receive Date: 20120403
  Receipt Date: 20120326
  Transmission Date: 20120825
  Serious: Yes (Hospitalization)
  Sender: FDA-Public Use
  Company Number: PHHY2012JP015751

PATIENT
  Sex: Female

DRUGS (6)
  1. ALISKIREN [Suspect]
     Dosage: 150 MG, QD
     Route: 048
     Dates: start: 20101018
  2. ENALAPRIL MALEATE [Suspect]
     Indication: HYPERTENSION
     Dosage: 10 MG, UNK
     Route: 048
     Dates: start: 19950501
  3. SIMVASTATIN [Concomitant]
     Route: 048
     Dates: start: 20000124
  4. BEZATOL - SLOW RELEASE [Concomitant]
     Route: 048
     Dates: start: 20000318
  5. MICARDIS [Suspect]
     Indication: HYPERTENSION
     Dosage: 80 MG, UNK
     Route: 048
     Dates: start: 20051031
  6. HALCION [Concomitant]
     Route: 048
     Dates: start: 20090511

REACTIONS (2)
  - INTERSTITIAL LUNG DISEASE [None]
  - RENAL IMPAIRMENT [None]
